FAERS Safety Report 10168688 (Version 1)
Quarter: 2014Q2

REPORT INFORMATION
  Report Type: Spontaneous
  Country: US (occurrence: None)
  Receive Date: 20140512
  Receipt Date: 20140512
  Transmission Date: 20141212
  Serious: Yes (Hospitalization)
  Sender: FDA-Public Use
  Company Number: None

PATIENT
  Age: 15 Year
  Sex: Female
  Weight: 80.74 kg

DRUGS (1)
  1. ORACEA [Suspect]
     Indication: ACNE
     Route: 048
     Dates: start: 20140507, end: 20140507

REACTIONS (9)
  - Abdominal pain upper [None]
  - Erythema [None]
  - Cough [None]
  - Rash erythematous [None]
  - Rash generalised [None]
  - Vomiting [None]
  - Nausea [None]
  - Faeces discoloured [None]
  - Micturition disorder [None]
